FAERS Safety Report 24152012 (Version 1)
Quarter: 2024Q3

REPORT INFORMATION
  Report Type: Report from Study
  Country: IL (occurrence: IL)
  Receive Date: 20240730
  Receipt Date: 20240730
  Transmission Date: 20241016
  Serious: Yes (Other)
  Sender: MLV PHARMA
  Company Number: IL-MPL-000054

PATIENT
  Age: 71 Year
  Sex: Male

DRUGS (1)
  1. ROPINIROLE [Suspect]
     Active Substance: ROPINIROLE
     Indication: Parkinson^s disease
     Route: 065

REACTIONS (3)
  - Disease progression [Recovering/Resolving]
  - Parkinson^s disease [Recovering/Resolving]
  - Therapeutic product effect incomplete [Unknown]
